FAERS Safety Report 20914462 (Version 1)
Quarter: 2022Q2

REPORT INFORMATION
  Report Type: Spontaneous
  Country: US (occurrence: US)
  Receive Date: 20220604
  Receipt Date: 20220604
  Transmission Date: 20220721
  Serious: Yes (Other)
  Sender: FDA-Public Use
  Company Number: US-SA-SAC20220523000850

PATIENT
  Age: 69 Year
  Sex: Female

DRUGS (1)
  1. DUPIXENT [Suspect]
     Active Substance: DUPILUMAB
     Dosage: 400 MG, 1X
     Route: 058

REACTIONS (5)
  - Anaphylactic reaction [Unknown]
  - Rash erythematous [Not Recovered/Not Resolved]
  - Pharyngeal swelling [Unknown]
  - Urticaria [Unknown]
  - Eye inflammation [Unknown]

NARRATIVE: CASE EVENT DATE: 20220411
